FAERS Safety Report 9245057 (Version 2)
Quarter: 2013Q2

REPORT INFORMATION
  Report Type: Report from Study
  Country: TW (occurrence: TW)
  Receive Date: 20130422
  Receipt Date: 20130430
  Transmission Date: 20140414
  Serious: Yes (Hospitalization)
  Sender: FDA-Public Use
  Company Number: TW-SHIRE-SPV1-2009-00758

PATIENT
  Age: 5 Year
  Sex: Male
  Weight: 30.3 kg

DRUGS (3)
  1. IDURSULFASE [Suspect]
     Indication: MUCOPOLYSACCHARIDOSIS II
     Dosage: 18 MG, 1X/2WKS
     Route: 041
     Dates: start: 20081231
  2. ATENOLOL [Concomitant]
     Indication: LEFT VENTRICULAR HYPERTROPHY
     Dosage: 25 MG, 1X/DAY:QD
     Route: 048
     Dates: start: 20090114
  3. RENITEC                            /00574901/ [Concomitant]
     Indication: LEFT VENTRICULAR HYPERTROPHY
     Dosage: 5 MG, 2X/DAY:BID
     Route: 048
     Dates: start: 20080903

REACTIONS (13)
  - Pneumonia [Recovered/Resolved]
  - Head injury [Recovering/Resolving]
  - Haematoma [Recovering/Resolving]
  - Concussion [Recovering/Resolving]
  - Brain oedema [Recovering/Resolving]
  - Intracranial pressure increased [Recovering/Resolving]
  - Cerebral ventricle dilatation [Unknown]
  - Lethargy [Unknown]
  - Decreased appetite [Unknown]
  - Rhinorrhoea [Unknown]
  - Fall [Recovered/Resolved]
  - Cough [Unknown]
  - Vomiting [Unknown]
